FAERS Safety Report 13790806 (Version 2)
Quarter: 2017Q3

REPORT INFORMATION
  Report Type: Report from Study
  Country: US (occurrence: US)
  Receive Date: 20170725
  Receipt Date: 20170817
  Transmission Date: 20171127
  Serious: Yes (Other)
  Sender: FDA-Public Use
  Company Number: US-GILEAD-2017-0284422

PATIENT
  Age: 74 Year
  Sex: Female

DRUGS (2)
  1. AMBRISENTAN [Suspect]
     Active Substance: AMBRISENTAN
     Indication: PRODUCT USED FOR UNKNOWN INDICATION
     Dosage: 10 MG, QD
     Route: 065
  2. AMBRISENTAN [Suspect]
     Active Substance: AMBRISENTAN
     Dosage: 5 MG, QD
     Route: 065
     Dates: start: 201707

REACTIONS (7)
  - Dyspnoea [Recovering/Resolving]
  - Rheumatoid arthritis [Unknown]
  - Thyroid mass [Not Recovered/Not Resolved]
  - Product use issue [Unknown]
  - Catheterisation cardiac [Unknown]
  - Wheezing [Unknown]
  - Back pain [Recovering/Resolving]
